FAERS Safety Report 11918644 (Version 1)
Quarter: 2016Q1

REPORT INFORMATION
  Report Type: Report from Study
  Country: US (occurrence: US)
  Receive Date: 20160115
  Receipt Date: 20160115
  Transmission Date: 20160526
  Serious: Yes (Disabling)
  Sender: FDA-Public Use
  Company Number: US-BAUSCH-BL-2016-001155

PATIENT
  Age: 39 Year
  Sex: Male

DRUGS (1)
  1. XENAZINE [Suspect]
     Active Substance: TETRABENAZINE
     Indication: HUNTINGTON^S DISEASE
     Route: 048
     Dates: start: 20151229

REACTIONS (3)
  - Therapeutic response unexpected [Unknown]
  - Disability [Unknown]
  - Weight gain poor [Unknown]

NARRATIVE: CASE EVENT DATE: 201601
